FAERS Safety Report 24761535 (Version 1)
Quarter: 2024Q4

REPORT INFORMATION
  Report Type: Spontaneous
  Country: US (occurrence: US)
  Receive Date: 20241220
  Receipt Date: 20241220
  Transmission Date: 20250114
  Serious: Yes (Other)
  Sender: PFIZER
  Company Number: US-PFIZER INC-PV202400166237

PATIENT
  Sex: Female

DRUGS (1)
  1. DEPO-PROVERA [Suspect]
     Active Substance: MEDROXYPROGESTERONE ACETATE
     Indication: Contraception
     Dosage: UNK (ROUGHLY TWENTY-FOUR INJECTIONS)
     Route: 030
     Dates: start: 2005, end: 201109

REACTIONS (2)
  - Intracranial meningioma malignant [Unknown]
  - Meningioma malignant [Unknown]
